FAERS Safety Report 9178890 (Version 2)
Quarter: 2013Q2

REPORT INFORMATION
  Report Type: Spontaneous
  Country: HU (occurrence: HU)
  Receive Date: 20130321
  Receipt Date: 20130503
  Transmission Date: 20140414
  Serious: Yes (Hospitalization)
  Sender: FDA-Public Use
  Company Number: HU-BAXTER-2013BAX009713

PATIENT
  Age: 6 Year
  Sex: Male
  Weight: 25 kg

DRUGS (5)
  1. ADVATE 500 IU POWDER AND SOLVENT FOR SOLUTION FOR INJECTION [Suspect]
     Indication: FACTOR VIII DEFICIENCY
     Route: 042
     Dates: start: 20130211, end: 20130211
  2. ADVATE 500 IU POWDER AND SOLVENT FOR SOLUTION FOR INJECTION [Suspect]
     Indication: HAEMORRHAGE
     Route: 042
     Dates: start: 20130212, end: 20130212
  3. ADVATE 500 IU POWDER AND SOLVENT FOR SOLUTION FOR INJECTION [Suspect]
     Route: 042
     Dates: start: 20130213, end: 20130213
  4. NOVOSEVEN [Concomitant]
     Indication: HAEMORRHAGE PROPHYLAXIS
     Route: 042
     Dates: start: 20130225, end: 20130228
  5. NOVOSEVEN [Concomitant]
     Indication: FACTOR VIII DEFICIENCY
     Route: 042

REACTIONS (3)
  - Factor VIII inhibition [Not Recovered/Not Resolved]
  - Wound haematoma [Unknown]
  - Rash [Unknown]
